FAERS Safety Report 21254477 (Version 1)
Quarter: 2022Q3

REPORT INFORMATION
  Report Type: Spontaneous
  Country: US (occurrence: None)
  Receive Date: 20220824
  Receipt Date: 20220824
  Transmission Date: 20221027
  Serious: Yes (Hospitalization)
  Sender: FDA-Public Use
  Company Number: None

PATIENT
  Age: 22 Year
  Sex: Female

DRUGS (2)
  1. HUMIRA [Suspect]
     Active Substance: ADALIMUMAB
     Indication: Colitis ulcerative
     Dosage: FREQUENCY : EVERY OTHER WEEK;?
     Route: 058
     Dates: start: 20220315, end: 20220606
  2. iron tablets [Concomitant]

REACTIONS (6)
  - Faeces discoloured [None]
  - Pain [None]
  - Chromaturia [None]
  - Ocular icterus [None]
  - Rash [None]
  - Hepatic enzyme increased [None]

NARRATIVE: CASE EVENT DATE: 20220606
